FAERS Safety Report 4735441-6 (Version None)
Quarter: 2005Q3

REPORT INFORMATION
  Report Type: 
  Country: None (occurrence: None)
  Receive Date: 20050801
  Receipt Date: 20050801
  Transmission Date: 20060218
  Serious: Yes (Hospitalization)
  Sender: FDA-Public Use
  Company Number: None

PATIENT
  Age: 58 Year
  Sex: Male
  Weight: 106 kg

DRUGS (2)
  1. IBUPROFEN [Suspect]
     Indication: BACK PAIN
     Dosage: NOT SURE OF DOSE
     Route: 065
  2. NAPROXEN [Suspect]
     Indication: BACK PAIN
     Dosage: 500 MG BID

REACTIONS (1)
  - UPPER GASTROINTESTINAL HAEMORRHAGE [None]
